FAERS Safety Report 14657580 (Version 2)
Quarter: 2018Q2

REPORT INFORMATION
  Report Type: Report from Study
  Country: None (occurrence: BE)
  Receive Date: 20180319
  Receipt Date: 20180406
  Transmission Date: 20180711
  Serious: Yes (Hospitalization)
  Sender: FDA-Public Use
  Company Number: BE-ABBVIE-18K-013-2240600-00

PATIENT
  Sex: Male

DRUGS (14)
  1. DUODOPA [Suspect]
     Active Substance: CARBIDOPA\LEVODOPA
     Dosage: AM: 10ML; CD: 3.4ML/H FOR 16 HRS; ED: 2ML
     Route: 050
     Dates: start: 20180313, end: 20180404
  2. PROLOPA 250 [Concomitant]
     Dosage: FORM STRENGTH: 200MG/50MG?5TIME/DAY AS RESCUE MEDICATION
  3. ASPIRIN. [Concomitant]
     Active Substance: ASPIRIN
     Indication: PRODUCT USED FOR UNKNOWN INDICATION
  4. DUODOPA [Suspect]
     Active Substance: CARBIDOPA\LEVODOPA
     Dosage: AM: 10ML, CD: 3.2ML/H FOR 16 HRS; ED: 2ML
     Route: 050
     Dates: start: 20180404
  5. LORMETAZEPAM [Concomitant]
     Active Substance: LORMETAZEPAM
     Indication: PRODUCT USED FOR UNKNOWN INDICATION
  6. CITALOPRAM [Concomitant]
     Active Substance: CITALOPRAM HYDROBROMIDE
     Indication: PRODUCT USED FOR UNKNOWN INDICATION
  7. DUODOPA [Suspect]
     Active Substance: CARBIDOPA\LEVODOPA
     Indication: PARKINSON^S DISEASE
     Dosage: UNKNOWN
     Route: 050
     Dates: start: 20111017, end: 20111019
  8. DUODOPA [Suspect]
     Active Substance: CARBIDOPA\LEVODOPA
     Dosage: MD=10ML??CD=3.6ML/HR DURING 16HRS ??ED=2.5ML
     Route: 050
     Dates: start: 20111019, end: 20111022
  9. DUODOPA [Suspect]
     Active Substance: CARBIDOPA\LEVODOPA
     Dosage: MD=10ML?CD=3.3ML/HR DURING 16HRS ?ED=2ML
     Route: 050
     Dates: start: 20171031, end: 20180123
  10. PROLOPA 250 [Concomitant]
     Indication: PARKINSON^S DISEASE
     Dosage: FORM STRENGTH: 200MG/50MG??DAILY DOSE : UNKNOW UNIT AT 7AM + 0.5 TABLET 6TIME/DAY
     Route: 048
  11. TRAZODONE [Concomitant]
     Active Substance: TRAZODONE HYDROCHLORIDE
     Indication: PRODUCT USED FOR UNKNOWN INDICATION
  12. DUODOPA [Suspect]
     Active Substance: CARBIDOPA\LEVODOPA
     Dosage: DOSES CONTINUOUSLY MONITORED AND ADAPTED
     Route: 050
     Dates: start: 20111022, end: 20171031
  13. DUODOPA [Suspect]
     Active Substance: CARBIDOPA\LEVODOPA
     Dosage: MD=10ML?CD=3.5ML/HR DURING 16HRS ?ED=2ML
     Route: 050
     Dates: start: 20180123, end: 20180313
  14. CORUNO [Concomitant]
     Active Substance: MOLSIDOMINE
     Indication: PRODUCT USED FOR UNKNOWN INDICATION

REACTIONS (3)
  - Dyskinesia [Unknown]
  - Pyrexia [Unknown]
  - Fall [Not Recovered/Not Resolved]
